FAERS Safety Report 5697620-3 (Version None)
Quarter: 2008Q2

REPORT INFORMATION
  Report Type: 
  Country: None (occurrence: None)
  Receive Date: 20080408
  Receipt Date: 20080401
  Transmission Date: 20081010
  Serious: Yes (Other)
  Sender: FDA-Public Use
  Company Number: JP-ASTRAZENECA-2008AP02291

PATIENT
  Age: 83 Year
  Sex: Female

DRUGS (4)
  1. DIPRIVAN [Suspect]
     Indication: SEDATION
     Route: 042
     Dates: start: 20080309, end: 20080301
  2. DIPRIVAN [Suspect]
     Indication: PERITONITIS
     Route: 042
     Dates: start: 20080309, end: 20080301
  3. DIPRIVAN [Suspect]
     Route: 042
     Dates: start: 20080301, end: 20080317
  4. DIPRIVAN [Suspect]
     Route: 042
     Dates: start: 20080301, end: 20080317

REACTIONS (1)
  - DELAYED RECOVERY FROM ANAESTHESIA [None]
